FAERS Safety Report 11855205 (Version 1)
Quarter: 2015Q4

REPORT INFORMATION
  Report Type: Spontaneous
  Country: PT (occurrence: PT)
  Receive Date: 20151221
  Receipt Date: 20151221
  Transmission Date: 20160305
  Serious: Yes (Life-Threatening, Other)
  Sender: FDA-Public Use
  Company Number: PT-WATSON-2015-15931

PATIENT
  Age: 56 Year
  Sex: Male

DRUGS (1)
  1. IPRATROPIUM BROMIDE (UNKNOWN) [Suspect]
     Active Substance: IPRATROPIUM BROMIDE
     Indication: INFECTIVE EXACERBATION OF CHRONIC OBSTRUCTIVE AIRWAYS DISEASE
     Dosage: UNK
     Route: 055

REACTIONS (2)
  - Stress cardiomyopathy [Recovered/Resolved]
  - Bronchospasm paradoxical [Recovered/Resolved]
